FAERS Safety Report 13648719 (Version 1)
Quarter: 2017Q2

REPORT INFORMATION
  Report Type: Spontaneous
  Country: KR (occurrence: KR)
  Receive Date: 20170613
  Receipt Date: 20170613
  Transmission Date: 20170830
  Serious: Yes (Hospitalization, Other)
  Sender: FDA-Public Use
  Company Number: KR-ELI_LILLY_AND_COMPANY-KR201706000819

PATIENT
  Sex: Male

DRUGS (2)
  1. CYMBALTA [Suspect]
     Active Substance: DULOXETINE HYDROCHLORIDE
     Indication: URINARY INCONTINENCE
     Dosage: UNK, UNKNOWN
     Route: 048
     Dates: start: 201610, end: 201705
  2. CIALIS [Suspect]
     Active Substance: TADALAFIL
     Indication: URINARY INCONTINENCE
     Dosage: UNK UNK, UNKNOWN
     Route: 048
     Dates: start: 201610, end: 201705

REACTIONS (6)
  - Wrong technique in product usage process [Recovered/Resolved]
  - Chromaturia [Unknown]
  - Body temperature increased [Recovering/Resolving]
  - Diplopia [Unknown]
  - Off label use [Unknown]
  - Dizziness [Unknown]
